FAERS Safety Report 6527944-9 (Version None)
Quarter: 2010Q1

REPORT INFORMATION
  Report Type: 
  Country: None (occurrence: None)
  Receive Date: 20100106
  Receipt Date: 20091231
  Transmission Date: 20100710
  Serious: Yes (Hospitalization)
  Sender: FDA-Public Use
  Company Number: GB-SANOFI-AVENTIS-200911772GDDC

PATIENT
  Age: 51 Year
  Sex: Female
  Weight: 61.8 kg

DRUGS (9)
  1. BLINDED THERAPY [Suspect]
     Indication: NON-SMALL CELL LUNG CANCER
     Dosage: DOSE UNIT: 6 MG/KG
     Route: 042
     Dates: start: 20090202, end: 20090202
  2. DOCETAXEL [Suspect]
     Indication: NON-SMALL CELL LUNG CANCER
     Dosage: DOSE UNIT: 75 MG/M**2
     Route: 042
     Dates: start: 20090202, end: 20090202
  3. OLANZAPINE [Concomitant]
     Route: 055
     Dates: start: 19980101
  4. CITALOPRAM HYDROBROMIDE [Concomitant]
     Route: 055
     Dates: start: 19980101
  5. OMEPRAZOLE [Concomitant]
     Dates: start: 20080412
  6. HORMONES AND RELATED AGENTS [Concomitant]
     Dates: start: 20060101
  7. CO-CODAMOL [Concomitant]
     Dates: start: 20080201
  8. CORTICOSTEROIDS [Concomitant]
  9. OPIOIDS [Concomitant]

REACTIONS (2)
  - HALLUCINATION [None]
  - MYOPATHY [None]
